FAERS Safety Report 9220587 (Version 1)
Quarter: 2013Q2

REPORT INFORMATION
  Report Type: Spontaneous
  Country: DE (occurrence: DE)
  Receive Date: 20130409
  Receipt Date: 20130409
  Transmission Date: 20140414
  Serious: Yes (Other)
  Sender: FDA-Public Use
  Company Number: DE-009507513-2011SP044593

PATIENT
  Age: 29 Year
  Sex: Female

DRUGS (2)
  1. IMPLANON [Suspect]
     Dosage: UNK
     Dates: start: 2001, end: 201208
  2. FOLIO [Concomitant]

REACTIONS (7)
  - Abortion spontaneous [Recovered/Resolved]
  - Unintended pregnancy [Recovered/Resolved]
  - Menstruation irregular [Unknown]
  - Weight increased [Unknown]
  - Incorrect drug administration duration [Unknown]
  - Device difficult to use [Unknown]
  - Medical device complication [Unknown]
